FAERS Safety Report 8995541 (Version 1)
Quarter: 2013Q1

REPORT INFORMATION
  Report Type: Spontaneous
  Country: US (occurrence: US)
  Receive Date: 20130103
  Receipt Date: 20130103
  Transmission Date: 20140127
  Serious: No
  Sender: FDA-Public Use
  Company Number: US-ABBOTT-12P-163-0903475-00

PATIENT
  Sex: Male

DRUGS (2)
  1. SYNTHROID [Suspect]
     Indication: HYPOTHYROIDISM
     Dates: start: 2011, end: 201201
  2. SYNTHROID 88 MCG [Suspect]
     Indication: HYPOTHYROIDISM
     Dates: start: 201201, end: 201202

REACTIONS (5)
  - Dyspnoea [Recovering/Resolving]
  - Genital tract inflammation [Not Recovered/Not Resolved]
  - Palpitations [Recovered/Resolved]
  - Insomnia [Recovering/Resolving]
  - Vision blurred [Recovering/Resolving]
